FAERS Safety Report 4761469-6 (Version None)
Quarter: 2005Q3

REPORT INFORMATION
  Report Type: 
  Country: None (occurrence: None)
  Receive Date: 20050830
  Receipt Date: 20050624
  Transmission Date: 20060218
  Serious: Yes (Hospitalization, Other)
  Sender: FDA-Public Use
  Company Number: US_0411107613

PATIENT
  Age: 41 Year
  Sex: Male
  Weight: 112 kg

DRUGS (23)
  1. ZYPREXA [Suspect]
     Dosage: 15 MG
     Dates: start: 20000201, end: 20010101
  2. SYMBYAX [Suspect]
     Dates: start: 20000201, end: 20010728
  3. PROZAC [Suspect]
     Dates: start: 20000913
  4. SEROQUEL [Concomitant]
  5. GEODON [Concomitant]
  6. DEPAKOTE [Concomitant]
  7. LITHIUM CARBONATE [Concomitant]
  8. REMERON (MIRTAZAPINE ORIFARM) [Concomitant]
  9. SERZONE [Concomitant]
  10. EFFEXOR [Concomitant]
  11. TRAZODONE HCL [Concomitant]
  12. NEURONTIN [Concomitant]
  13. XANAX (ALPRAZOLAM DUM) [Concomitant]
  14. LASIX [Concomitant]
  15. KCL (POTASSIUM CHLORIDE) [Concomitant]
  16. KLONOPIN [Concomitant]
  17. TRAZODONE [Concomitant]
  18. HYDROXYZINE [Concomitant]
  19. BUPROPION [Concomitant]
  20. RITALIN [Concomitant]
  21. ZOLOFT [Concomitant]
  22. PRINIVIL [Concomitant]
  23. .. [Suspect]

REACTIONS (16)
  - BLOOD CHOLESTEROL INCREASED [None]
  - DEHYDRATION [None]
  - DIABETES MELLITUS NON-INSULIN-DEPENDENT [None]
  - DIARRHOEA [None]
  - EROSIVE OESOPHAGITIS [None]
  - GASTROINTESTINAL HAEMORRHAGE [None]
  - HYPERGLYCAEMIA [None]
  - HYPOGLYCAEMIA [None]
  - HYPOKALAEMIA [None]
  - HYPOTENSION [None]
  - LOSS OF CONSCIOUSNESS [None]
  - MOOD DISORDER DUE TO A GENERAL MEDICAL CONDITION [None]
  - PANCREATITIS [None]
  - POLYDIPSIA [None]
  - POLYURIA [None]
  - WEIGHT DECREASED [None]
